FAERS Safety Report 6453104-6 (Version None)
Quarter: 2009Q4

REPORT INFORMATION
  Report Type: 
  Country: None (occurrence: None)
  Receive Date: 20091116
  Receipt Date: 20091109
  Transmission Date: 20100525
  Serious: Yes (Other)
  Sender: FDA-Public Use
  Company Number: 2009SP033702

PATIENT
  Age: 53 Year
  Sex: Male

DRUGS (6)
  1. TEMODAL [Suspect]
     Indication: OLIGODENDROGLIOMA
     Dosage: 175 MG/M2;QD;PO
     Route: 048
     Dates: start: 20090925, end: 20090929
  2. TEGRETOL [Concomitant]
  3. KEPPRA [Concomitant]
  4. OMEPRAZOLE [Concomitant]
  5. STILNOCT [Concomitant]
  6. XYZAL [Concomitant]

REACTIONS (1)
  - LYMPHOCYTOSIS [None]
